FAERS Safety Report 10265232 (Version 3)
Quarter: 2014Q2

REPORT INFORMATION
  Report Type: Report from Study
  Country: FI (occurrence: FI)
  Receive Date: 20140627
  Receipt Date: 20140630
  Transmission Date: 20141212
  Serious: Yes (Life-Threatening, Hospitalization)
  Sender: FDA-Public Use
  Company Number: FI-SANOFI-AVENTIS-2013SA058661

PATIENT
  Age: 55 Year
  Sex: Male

DRUGS (7)
  1. INSULIN GLARGINE [Suspect]
     Indication: TYPE 1 DIABETES MELLITUS
     Route: 058
     Dates: start: 20130211, end: 20130601
  2. RAMIPRIL [Concomitant]
     Indication: PRODUCT USED FOR UNKNOWN INDICATION
     Route: 048
     Dates: start: 20120819
  3. PROPRAL [Concomitant]
     Indication: PRODUCT USED FOR UNKNOWN INDICATION
     Route: 048
     Dates: start: 20120819
  4. CITALOPRAM [Concomitant]
     Indication: PRODUCT USED FOR UNKNOWN INDICATION
     Route: 048
     Dates: start: 20010901
  5. ATORVASTATIN [Concomitant]
     Indication: PRODUCT USED FOR UNKNOWN INDICATION
     Route: 048
     Dates: start: 20020115
  6. NOVORAPID [Concomitant]
     Indication: TYPE 1 DIABETES MELLITUS
     Dosage: DOSE:35 INTERNATIONAL UNIT(S)/MILLILITRE
     Route: 058
     Dates: start: 20060815
  7. PRIMASPAN [Concomitant]
     Indication: PRODUCT USED FOR UNKNOWN INDICATION
     Route: 048
     Dates: start: 20020115

REACTIONS (7)
  - Thoracic vertebral fracture [Recovered/Resolved with Sequelae]
  - Pelvic fracture [Recovered/Resolved with Sequelae]
  - Rib fracture [Recovered/Resolved]
  - Subdural haematoma [Recovered/Resolved]
  - Brain contusion [Recovered/Resolved with Sequelae]
  - Road traffic accident [Recovered/Resolved with Sequelae]
  - Hypoglycaemia [Recovered/Resolved]
